FAERS Safety Report 7096412-0 (Version None)
Quarter: 2010Q4

REPORT INFORMATION
  Report Type: 
  Country: None (occurrence: None)
  Receive Date: 20101109
  Receipt Date: 20101109
  Transmission Date: 20110411
  Serious: No
  Sender: FDA-Public Use
  Company Number: None

PATIENT
  Sex: Female
  Weight: 124.7392 kg

DRUGS (1)
  1. ACYCLOVIR 400MG BID [Suspect]
     Indication: HERPES SIMPLEX
     Dosage: 400MG BID
     Dates: start: 20081211, end: 20090609

REACTIONS (1)
  - NO THERAPEUTIC RESPONSE [None]
